FAERS Safety Report 8877697 (Version 2)
Quarter: 2012Q4

REPORT INFORMATION
  Report Type: 
  Country: BR (occurrence: BR)
  Receive Date: 20121024
  Receipt Date: 20121228
  Transmission Date: 20130627
  Serious: Yes (Other)
  Sender: FDA-Public Use
  Company Number: PHHY2012BR094425

PATIENT
  Age: 65 Year
  Sex: Female
  Weight: 73 kg

DRUGS (16)
  1. GALVUS MET [Suspect]
     Indication: DIABETES MELLITUS
     Dosage: 1 DF (one tablet (vildagliptin 50mg and metformin 850mg) before the lunch)
     Route: 048
     Dates: start: 20121003
  2. GALVUS MET [Suspect]
     Dosage: 1 DF; one tablet (vildagliptin 50mg and metformin 1000mg) before the lunch
     Route: 048
     Dates: end: 20121015
  3. GALVUS MET [Suspect]
     Dosage: 1 DF; one tablet (vildagliptin 50mg and metformin 100mg) before dinner
     Route: 048
     Dates: start: 20121017
  4. DIOVAN [Suspect]
     Indication: HYPERTENSION
     Dosage: 320 mg (1 tablet at morning)
     Route: 048
     Dates: start: 201206, end: 20121008
  5. DIOVAN AMLO FIX [Suspect]
     Indication: HYPERTENSION
     Dosage: 1 DF, 1 tablet (valsartan 320mg and amlodipine 5mg) a day
     Route: 048
  6. CARDIZEM [Suspect]
     Indication: PALPITATIONS
     Dosage: 2 DF, 1 tablet at morning and 1 tablet at night
     Route: 048
     Dates: start: 201206, end: 20121017
  7. ANTIBIOTICS [Concomitant]
     Dosage: UNK
  8. DICLOFENAC [Concomitant]
     Dosage: UNK
  9. ATENOLOL [Concomitant]
     Indication: HYPERTENSION
     Dosage: 1 DF, 1 tablet a day
     Route: 048
  10. LASIX [Concomitant]
     Indication: HYPERTENSION
     Dosage: 1 DF,1 tablet at morning
     Route: 048
  11. AAS [Concomitant]
     Indication: HYPERTENSION
     Dosage: 1 DF, 1 tablet after lunch
     Route: 048
  12. OMEPRAZOLE [Concomitant]
     Indication: GASTROOESOPHAGEAL REFLUX DISEASE
     Dosage: 1 DF, 1 tablet before breakfast
     Route: 048
  13. GLIMEPIRIDE [Concomitant]
     Indication: DIABETES MELLITUS
     Dosage: 1 DF, 1 tablet at morning
     Route: 048
  14. CITALOPRAM [Concomitant]
     Indication: ANXIETY
     Dosage: 1 DF, 1 tablet at night
     Route: 048
  15. STUGERON [Concomitant]
     Indication: LABYRINTHITIS
     Dosage: 1 DF, Q12H (1 tablet every 12 hours)
     Route: 048
     Dates: start: 201210
  16. INSULIN [Concomitant]

REACTIONS (4)
  - Labyrinthitis [Recovering/Resolving]
  - Kidney fibrosis [Recovering/Resolving]
  - Pyelonephritis chronic [Recovering/Resolving]
  - Blood pressure increased [Recovered/Resolved]
